FAERS Safety Report 5546233-2 (Version None)
Quarter: 2007Q4

REPORT INFORMATION
  Report Type: 
  Country: None (occurrence: None)
  Receive Date: 20071211
  Receipt Date: 20071206
  Transmission Date: 20080405
  Serious: Yes (Hospitalization, Other)
  Sender: FDA-Public Use
  Company Number: US-AVENTIS-200718527US

PATIENT
  Age: 52 Year
  Sex: Male

DRUGS (4)
  1. LANTUS [Suspect]
     Indication: DIABETES MELLITUS
     Dosage: DOSE: UNK
  2. HUMALOG [Concomitant]
     Dosage: DOSE: 20 (EACH MEAL)
     Dates: start: 20070801
  3. HUMALOG [Concomitant]
     Dosage: DOSE: UNK
     Dates: end: 20070801
  4. METFORMIN HCL [Concomitant]

REACTIONS (2)
  - CELLULITIS [None]
  - NEUROPATHIC ARTHROPATHY [None]
